FAERS Safety Report 19275084 (Version 2)
Quarter: 2021Q3

REPORT INFORMATION
  Report Type: Report from Study
  Country: NL (occurrence: NL)
  Receive Date: 20210519
  Receipt Date: 20210811
  Transmission Date: 20211014
  Serious: Yes (Other)
  Sender: FDA-Public Use
  Company Number: NL-AMGEN-NLDSL2021074054

PATIENT
  Age: 82 Year
  Sex: Female

DRUGS (3)
  1. METOCLOPRAMIDE. [Concomitant]
     Active Substance: METOCLOPRAMIDE
     Dosage: 10 MILLIGRAM, 1?3D1T WHEN NEEDED
  2. XGEVA [Suspect]
     Active Substance: DENOSUMAB
     Indication: PROPHYLAXIS
     Dosage: 120 MILLIGRAM/1.7ML, Q4WK
     Route: 058
     Dates: start: 20200903
  3. XGEVA [Suspect]
     Active Substance: DENOSUMAB
     Dosage: 120 MILLIGRAM/1.7ML, Q4WK
     Route: 058

REACTIONS (1)
  - Metastases to ovary [Not Recovered/Not Resolved]

NARRATIVE: CASE EVENT DATE: 20210428
